FAERS Safety Report 8815807 (Version 2)
Quarter: 2013Q4

REPORT INFORMATION
  Report Type: Spontaneous
  Country: US (occurrence: US)
  Receive Date: 20120928
  Receipt Date: 20131018
  Transmission Date: 20140711
  Serious: No
  Sender: FDA-Public Use
  Company Number: US-ASTRAZENECA-2012SE74381

PATIENT
  Age: 56 Year
  Sex: Male
  Weight: 125.6 kg

DRUGS (6)
  1. SYMBICORT PMDI [Suspect]
     Indication: EMPHYSEMA
     Dosage: 160 MCG, BID
     Route: 055
     Dates: start: 201210, end: 20130303
  2. SYMBICORT PMDI [Suspect]
     Indication: EMPHYSEMA
     Dosage: 160 MCG, BID
     Route: 055
     Dates: start: 201303, end: 201310
  3. PRISTIQ [Concomitant]
     Indication: DEPRESSION
  4. CLORAZEPAM [Concomitant]
     Indication: ANXIETY
  5. HYDROCODONE [Concomitant]
     Indication: BACK PAIN
  6. EMBREL [Concomitant]
     Indication: PSORIATIC ARTHROPATHY
     Dates: start: 201108

REACTIONS (6)
  - Dyspnoea [Recovered/Resolved]
  - Sciatic nerve injury [Unknown]
  - Dysphonia [Unknown]
  - Muscle spasms [Unknown]
  - Cough [Not Recovered/Not Resolved]
  - Drug dose omission [Unknown]
